FAERS Safety Report 8985782 (Version 3)
Quarter: 2013Q1

REPORT INFORMATION
  Report Type: Spontaneous
  Country: US (occurrence: US)
  Receive Date: 20121226
  Receipt Date: 20130217
  Transmission Date: 20140127
  Serious: Yes (Other)
  Sender: FDA-Public Use
  Company Number: US-JNJFOC-20121209722

PATIENT
  Age: 54 Year
  Sex: Male
  Weight: 87.7 kg

DRUGS (7)
  1. REMICADE [Suspect]
     Indication: ANKYLOSING SPONDYLITIS
     Route: 042
     Dates: start: 200807
  2. REMICADE [Suspect]
     Indication: CROHN^S DISEASE
     Route: 042
     Dates: start: 200807
  3. METHOTREXATE [Concomitant]
     Indication: CROHN^S DISEASE
     Route: 048
     Dates: start: 20120508
  4. FOLIC ACID [Concomitant]
     Indication: PROPHYLAXIS
     Route: 048
     Dates: start: 20080623
  5. ALL OTHER THERAPEUTICS [Concomitant]
     Route: 048
     Dates: start: 20080623
  6. EFFIENT [Concomitant]
     Indication: PROPHYLAXIS
     Route: 048
     Dates: start: 20110215
  7. ASA [Concomitant]
     Indication: PROPHYLAXIS
     Route: 048
     Dates: start: 20110215

REACTIONS (5)
  - Tonsil cancer [Recovered/Resolved]
  - Hypertension [Unknown]
  - Diabetes mellitus [Unknown]
  - Blood cholesterol increased [Unknown]
  - Hypertriglyceridaemia [Unknown]
